FAERS Safety Report 5310237-5 (Version None)
Quarter: 2007Q2

REPORT INFORMATION
  Report Type: 
  Country: None (occurrence: None)
  Receive Date: 20070427
  Receipt Date: 20070420
  Transmission Date: 20071010
  Serious: Yes (Hospitalization)
  Sender: FDA-Public Use
  Company Number: FR-ROCHE-494289

PATIENT
  Age: 24 Month
  Sex: Male

DRUGS (3)
  1. ROCEPHIN [Suspect]
     Indication: MASTOIDITIS
     Route: 042
     Dates: start: 20051008, end: 20051022
  2. TARGOCID [Suspect]
     Indication: MASTOIDITIS
     Route: 042
     Dates: start: 20051008, end: 20051022
  3. FUCIDINE CAP [Suspect]
     Indication: DRUG USE FOR UNKNOWN INDICATION
     Route: 065
     Dates: start: 20051024, end: 20051031

REACTIONS (4)
  - ERYTHEMA [None]
  - PYREXIA [None]
  - RASH PAPULAR [None]
  - TREMOR [None]
